FAERS Safety Report 25231691 (Version 1)
Quarter: 2025Q2

REPORT INFORMATION
  Report Type: Spontaneous
  Country: CN (occurrence: CN)
  Receive Date: 20250423
  Receipt Date: 20250423
  Transmission Date: 20250717
  Serious: Yes (Other)
  Sender: SANDOZ
  Company Number: CN-002147023-NVSC2025CN065208

PATIENT
  Age: 80 Year
  Sex: Female
  Weight: 65 kg

DRUGS (3)
  1. AZOPT [Suspect]
     Active Substance: BRINZOLAMIDE
     Indication: Intraocular pressure increased
     Dosage: 0.15 ML, TID
     Route: 047
     Dates: start: 20250414, end: 20250417
  2. PILOCARPINE [Suspect]
     Active Substance: PILOCARPINE
     Indication: Intraocular pressure increased
     Dosage: 0.05 ML, QID
     Route: 047
     Dates: start: 20250414, end: 20250417
  3. TIMOLOL MALEATE [Suspect]
     Active Substance: TIMOLOL MALEATE
     Indication: Intraocular pressure increased
     Dosage: 0.05 ML, BID
     Route: 047
     Dates: start: 20250414, end: 20250416

REACTIONS (8)
  - Blood pressure increased [Recovering/Resolving]
  - Heart rate decreased [Recovering/Resolving]
  - Abdominal pain [Recovering/Resolving]
  - Respiratory rate increased [Recovering/Resolving]
  - Nausea [Not Recovered/Not Resolved]
  - Vomiting [Recovered/Resolved]
  - Dizziness [Not Recovered/Not Resolved]
  - Diarrhoea [Recovered/Resolved]

NARRATIVE: CASE EVENT DATE: 20250415
